FAERS Safety Report 7656654-X (Version None)
Quarter: 2011Q3

REPORT INFORMATION
  Report Type: 
  Country: None (occurrence: None)
  Receive Date: 20110801
  Receipt Date: 20110715
  Transmission Date: 20111222
  Serious: Yes (Life-Threatening, Hospitalization, Other)
  Sender: FDA-Public Use
  Company Number: 2011MA008973

PATIENT
  Age: 27 Year
  Sex: Male

DRUGS (1)
  1. VENLAFAXINE HYDROCHLORIDE [Suspect]
     Indication: OVERDOSE
     Dosage: 6.3 GM

REACTIONS (10)
  - OVERDOSE [None]
  - LUNG CONSOLIDATION [None]
  - EOSINOPHILIC PNEUMONIA ACUTE [None]
  - TACHYCARDIA [None]
  - GRAND MAL CONVULSION [None]
  - RESPIRATORY FAILURE [None]
  - SHOCK [None]
  - AGITATION [None]
  - DYSPNOEA [None]
  - PULMONARY EOSINOPHILIA [None]
